FAERS Safety Report 18480611 (Version 1)
Quarter: 2020Q4

REPORT INFORMATION
  Report Type: Spontaneous
  Country: US (occurrence: US)
  Receive Date: 20201109
  Receipt Date: 20201109
  Transmission Date: 20210114
  Serious: No
  Sender: FDA-Public Use
  Company Number: None

PATIENT
  Age: 55 Year
  Sex: Female
  Weight: 58.5 kg

DRUGS (1)
  1. PRAVASTATIN 80 MG [Suspect]
     Active Substance: PRAVASTATIN SODIUM
     Indication: BLOOD CHOLESTEROL ABNORMAL
     Route: 048
     Dates: start: 20200803, end: 20201016

REACTIONS (12)
  - Decreased appetite [None]
  - Nasopharyngitis [None]
  - Hyperhidrosis [None]
  - Nausea [None]
  - Asthenia [None]
  - Disturbance in attention [None]
  - Pyrexia [None]
  - Myalgia [None]
  - Abdominal pain upper [None]
  - Rash [None]
  - Chest pain [None]
  - Therapy change [None]

NARRATIVE: CASE EVENT DATE: 20200908
